FAERS Safety Report 19603683 (Version 1)
Quarter: 2021Q3

REPORT INFORMATION
  Report Type: Spontaneous
  Country: PL (occurrence: PL)
  Receive Date: 20210723
  Receipt Date: 20210723
  Transmission Date: 20211014
  Serious: Yes (Disabling)
  Sender: FDA-Public Use
  Company Number: PL-MYLANLABS-2021M1006410

PATIENT
  Age: 41 Year
  Sex: Female

DRUGS (8)
  1. MAGNESIUM + B6 [Concomitant]
  2. ESTAZOLAM. [Suspect]
     Active Substance: ESTAZOLAM
     Indication: PRODUCT USED FOR UNKNOWN INDICATION
     Dosage: UNK
  3. MELATONIN [Concomitant]
     Active Substance: MELATONIN
  4. ZOLPIDEM [Suspect]
     Active Substance: ZOLPIDEM TARTRATE
     Indication: PRODUCT USED FOR UNKNOWN INDICATION
     Dosage: UNK
  5. MELISSA OFFICINALIS [Concomitant]
     Active Substance: HERBALS\HOMEOPATHICS\MELISSA OFFICINALIS
  6. QUETIAPINE. [Suspect]
     Active Substance: QUETIAPINE
     Indication: INSOMNIA
     Dosage: 50 MILLIGRAM
  7. HUMULUS LUPULUS [Concomitant]
     Active Substance: HOPS
  8. PASSIFLORA EDULIS [Concomitant]

REACTIONS (4)
  - Somnolence [Unknown]
  - Off label use [Unknown]
  - Paradoxical drug reaction [Unknown]
  - Dizziness [Unknown]
